FAERS Safety Report 4756109-6 (Version None)
Quarter: 2005Q3

REPORT INFORMATION
  Report Type: 
  Country: None (occurrence: None)
  Receive Date: 20050825
  Receipt Date: 20050629
  Transmission Date: 20060218
  Serious: Yes (Disabling)
  Sender: FDA-Public Use
  Company Number: WAES 0502USA02802

PATIENT
  Age: 80 Year
  Sex: Male

DRUGS (6)
  1. VYTORIN [Suspect]
     Indication: BLOOD CHOLESTEROL INCREASED
     Dosage: 10-40 MG/DAILY/PO; SEE IMAGE
     Route: 048
     Dates: start: 20050201, end: 20050201
  2. VYTORIN [Suspect]
     Indication: BLOOD CHOLESTEROL INCREASED
     Dosage: 10-40 MG/DAILY/PO; SEE IMAGE
     Route: 048
     Dates: start: 20050201, end: 20050220
  3. DILANTIN [Concomitant]
  4. PLAVIX [Concomitant]
  5. PRANDIN [Concomitant]
  6. ASPIRIN [Concomitant]

REACTIONS (2)
  - INTESTINAL OBSTRUCTION [None]
  - MYALGIA [None]
